FAERS Safety Report 21921238 (Version 2)
Quarter: 2023Q1

REPORT INFORMATION
  Report Type: Report from Study
  Country: ES (occurrence: ES)
  Receive Date: 20230127
  Receipt Date: 20230203
  Transmission Date: 20230418
  Serious: Yes (Hospitalization)
  Sender: FDA-Public Use
  Company Number: ES-JNJFOC-20221225905

PATIENT
  Age: 70 Year
  Sex: Female
  Weight: 57.8 kg

DRUGS (33)
  1. CILTACABTAGENE AUTOLEUCEL [Suspect]
     Active Substance: CILTACABTAGENE AUTOLEUCEL
     Indication: Plasma cell myeloma
     Route: 058
     Dates: start: 20221128, end: 20221128
  2. FENTANYL [Concomitant]
     Active Substance: FENTANYL
     Indication: Bone pain
     Route: 062
     Dates: start: 20221214
  3. FENTANYL [Concomitant]
     Active Substance: FENTANYL
     Route: 060
     Dates: start: 20221215, end: 20221219
  4. FLUDARABINE [Concomitant]
     Active Substance: FLUDARABINE PHOSPHATE
     Indication: Plasma cell myeloma
     Route: 042
     Dates: start: 20221123, end: 20221125
  5. CYCLOPHOSPHAMIDE [Concomitant]
     Active Substance: CYCLOPHOSPHAMIDE
     Indication: Plasma cell myeloma
     Route: 042
     Dates: start: 20221123, end: 20221125
  6. CALCIFEDIOL [Concomitant]
     Active Substance: CALCIFEDIOL
     Indication: Osteoarthritis
     Route: 048
     Dates: start: 20121001
  7. ENALAPRIL [Concomitant]
     Active Substance: ENALAPRIL
     Indication: Hypertension
     Route: 048
     Dates: start: 20150901
  8. ACETAMINOPHEN [Concomitant]
     Active Substance: ACETAMINOPHEN
     Indication: Osteoarthritis
     Route: 048
     Dates: start: 20150901
  9. ACETAMINOPHEN [Concomitant]
     Active Substance: ACETAMINOPHEN
     Indication: Cytokine release syndrome
     Route: 042
     Dates: start: 20221204
  10. AMLODIPINE [Concomitant]
     Active Substance: AMLODIPINE BESYLATE
     Indication: Hypertension
     Route: 048
     Dates: start: 20161101, end: 20221128
  11. ATORVASTATIN [Concomitant]
     Active Substance: ATORVASTATIN
     Indication: Dyslipidaemia
     Route: 048
     Dates: start: 20211202
  12. AMITRIPTYLINE [Concomitant]
     Active Substance: AMITRIPTYLINE
     Indication: Pain prophylaxis
     Route: 048
     Dates: start: 20220302
  13. ACYCLOVIR [Concomitant]
     Active Substance: ACYCLOVIR
     Indication: Antiviral prophylaxis
     Route: 048
     Dates: start: 20220509
  14. BEMIPARIN [Concomitant]
     Active Substance: BEMIPARIN
     Indication: Thrombosis prophylaxis
     Dosage: DOSE: 3500 (DOSE UNIT NOT REPORTED)
     Route: 058
     Dates: start: 20220509
  15. DIAZEPAM [Concomitant]
     Active Substance: DIAZEPAM
     Indication: Anxiety
     Route: 048
     Dates: start: 20220524
  16. TRAMADOL [Concomitant]
     Active Substance: TRAMADOL
     Indication: Peripheral sensory neuropathy
     Route: 048
     Dates: start: 20220801
  17. TRAMADOL [Concomitant]
     Active Substance: TRAMADOL
     Indication: Bone pain
     Route: 042
     Dates: start: 20221213, end: 20221214
  18. AZITHROMYCIN [Concomitant]
     Active Substance: AZITHROMYCIN
     Indication: Bronchitis
     Route: 048
     Dates: start: 20221024
  19. BECLOMETHASONE DIPROPIONATE [Concomitant]
     Active Substance: BECLOMETHASONE DIPROPIONATE
     Indication: Bronchitis
     Dosage: 200/12
     Route: 055
     Dates: start: 20221024
  20. LORAZEPAM [Concomitant]
     Active Substance: LORAZEPAM
     Indication: Prophylaxis
     Route: 048
     Dates: start: 20221122
  21. FAMOTIDINE [Concomitant]
     Active Substance: FAMOTIDINE
     Indication: Gastrointestinal disorder therapy
     Route: 048
     Dates: start: 20221122, end: 20221223
  22. MIRTAZAPINE [Concomitant]
     Active Substance: MIRTAZAPINE
     Indication: Anxiety
     Route: 048
     Dates: start: 20221124
  23. GRANISETRON [Concomitant]
     Active Substance: GRANISETRON
     Indication: Hypertension
     Route: 048
     Dates: start: 20221129, end: 20221129
  24. GRANISETRON [Concomitant]
     Active Substance: GRANISETRON
     Route: 048
     Dates: start: 20221128, end: 20221206
  25. MEROPENEM [Concomitant]
     Active Substance: MEROPENEM
     Indication: Infection prophylaxis
     Route: 042
     Dates: start: 20221203, end: 20221210
  26. FLUCONAZOLE [Concomitant]
     Active Substance: FLUCONAZOLE
     Indication: Antifungal prophylaxis
     Route: 048
     Dates: start: 20221205, end: 20221215
  27. TOCILIZUMAB [Concomitant]
     Active Substance: TOCILIZUMAB
     Indication: Cytokine release syndrome
     Route: 042
     Dates: start: 20221207, end: 20221207
  28. ALMAGATE [Concomitant]
     Active Substance: ALMAGATE
     Indication: Dyspepsia
     Route: 048
     Dates: start: 20221127, end: 20221206
  29. DEXKETOPROFEN [Concomitant]
     Active Substance: DEXKETOPROFEN
     Indication: Bone pain
     Route: 042
     Dates: start: 20221205, end: 20221215
  30. CAPTOPRIL [Concomitant]
     Active Substance: CAPTOPRIL
     Indication: Hypertension
     Route: 048
     Dates: start: 20221208, end: 20221223
  31. METAMIZOL [Concomitant]
     Active Substance: METAMIZOLE SODIUM
     Indication: Bone pain
     Route: 042
     Dates: start: 20221207, end: 20221223
  32. LEVOFLOXACIN [Concomitant]
     Active Substance: LEVOFLOXACIN
     Indication: Infection prophylaxis
     Route: 048
     Dates: start: 20221211, end: 20221215
  33. FILGRASTIM [Concomitant]
     Active Substance: FILGRASTIM
     Indication: Neutropenia
     Route: 058
     Dates: start: 20221214, end: 20221214

REACTIONS (1)
  - Peripheral motor neuropathy [Not Recovered/Not Resolved]

NARRATIVE: CASE EVENT DATE: 20221207
